FAERS Safety Report 5537073-9 (Version None)
Quarter: 2007Q4

REPORT INFORMATION
  Report Type: 
  Country: None (occurrence: None)
  Receive Date: 20071207
  Receipt Date: 20071206
  Transmission Date: 20080405
  Serious: Yes (Hospitalization)
  Sender: FDA-Public Use
  Company Number: US-BRISTOL-MYERS SQUIBB COMPANY-14005557

PATIENT
  Age: 39 Year
  Sex: Male

DRUGS (11)
  1. COUMADIN [Suspect]
     Route: 065
     Dates: start: 20070101
  2. BACTROBAN [Suspect]
     Indication: BACTERIAL INFECTION
     Route: 061
     Dates: start: 20071031
  3. VALPROATE SODIUM [Concomitant]
  4. FRUSEMIDE [Concomitant]
  5. LEXAPRO [Concomitant]
  6. DONNATAL [Concomitant]
  7. VANCOMYCIN [Concomitant]
  8. METRONIDAZOLE [Concomitant]
  9. LORAZEPAM [Concomitant]
  10. METHADONE HCL [Concomitant]
  11. VALACYCLOVIR HCL [Concomitant]

REACTIONS (2)
  - METABOLIC DISORDER [None]
  - PROTHROMBIN TIME PROLONGED [None]
